FAERS Safety Report 14757398 (Version 2)
Quarter: 2018Q2

REPORT INFORMATION
  Report Type: Spontaneous
  Country: US (occurrence: US)
  Receive Date: 20180413
  Receipt Date: 20180612
  Transmission Date: 20180711
  Serious: Yes (Hospitalization)
  Sender: FDA-Public Use
  Company Number: US-ASTRAZENECA-2018SE45623

PATIENT
  Age: 784 Month
  Sex: Female
  Weight: 102.1 kg

DRUGS (2)
  1. BYDUREON [Suspect]
     Active Substance: EXENATIDE
     Indication: TYPE 2 DIABETES MELLITUS
     Route: 058
     Dates: start: 201802
  2. BYDUREON BCISE [Suspect]
     Active Substance: EXENATIDE
     Indication: TYPE 2 DIABETES MELLITUS
     Route: 058
     Dates: start: 20180328

REACTIONS (9)
  - Hypertension [Recovered/Resolved]
  - Intentional product misuse [Unknown]
  - Device issue [Unknown]
  - Blood glucose increased [Recovered/Resolved]
  - Head discomfort [Recovered/Resolved]
  - Gingivitis [Recovered/Resolved]
  - Injection site pain [Recovered/Resolved]
  - Localised infection [Recovered/Resolved]
  - Drug dose omission [Unknown]

NARRATIVE: CASE EVENT DATE: 201802
